FAERS Safety Report 23289271 (Version 1)
Quarter: 2023Q4

REPORT INFORMATION
  Report Type: Spontaneous
  Country: US (occurrence: US)
  Receive Date: 20231212
  Receipt Date: 20231212
  Transmission Date: 20240110
  Serious: No
  Sender: FDA-Public Use
  Company Number: US-SANDOZ-SDZ2023US067071

PATIENT
  Age: 22 Year
  Sex: Female

DRUGS (3)
  1. ESTRADIOL [Suspect]
     Active Substance: ESTRADIOL
     Indication: Product used for unknown indication
     Dosage: 375 MG, Q2W
     Route: 062
     Dates: start: 202210
  2. ESTRADIOL [Suspect]
     Active Substance: ESTRADIOL
     Dosage: 05 MG/24 H 8TTS
     Route: 065
  3. PROGESTERONE [Concomitant]
     Active Substance: PROGESTERONE
     Indication: Product used for unknown indication
     Dosage: 200 MG
     Route: 065

REACTIONS (5)
  - Hypersensitivity [Unknown]
  - Pruritus [Unknown]
  - Rash [Unknown]
  - Swelling [Unknown]
  - Product adhesion issue [Unknown]

NARRATIVE: CASE EVENT DATE: 20231001
